FAERS Safety Report 8458812-3 (Version None)
Quarter: 2012Q2

REPORT INFORMATION
  Report Type: 
  Country: None (occurrence: None)
  Receive Date: 20120622
  Receipt Date: 20120112
  Transmission Date: 20120825
  Serious: Yes (Hospitalization)
  Sender: FDA-Public Use
  Company Number: FR-CELGENEUS-056-21880-11113579

PATIENT
  Sex: Male

DRUGS (15)
  1. REVLIMID [Suspect]
     Dosage: 25 MILLIGRAM
     Route: 048
     Dates: end: 20111117
  2. BACTRIM DS [Concomitant]
     Dosage: 1 TABLET
     Route: 065
     Dates: start: 20111028
  3. BORTEZOMIB [Suspect]
     Indication: MULTIPLE MYELOMA
     Route: 065
     Dates: start: 20111028
  4. DEXAMETHASONE [Suspect]
     Route: 065
     Dates: end: 20111117
  5. REVLIMID [Suspect]
     Indication: MULTIPLE MYELOMA
     Route: 048
     Dates: start: 20111028
  6. ROCEPHIN [Concomitant]
     Indication: LUNG INFECTION
     Dosage: 1 GRAM
     Route: 065
     Dates: start: 20111223
  7. DEXAMETHASONE [Suspect]
     Indication: MULTIPLE MYELOMA
     Route: 065
     Dates: start: 20111028
  8. TRAMADOL HCL [Concomitant]
     Route: 065
  9. LOVENOX [Concomitant]
     Route: 058
     Dates: start: 20111028
  10. FOLIC ACID [Concomitant]
     Route: 048
     Dates: start: 20111028
  11. AMOXICILLIN [Concomitant]
     Route: 048
     Dates: start: 20111028
  12. ACYCLOVIR [Concomitant]
     Dosage: 250 MILLIGRAM
     Route: 065
  13. BORTEZOMIB [Suspect]
     Route: 065
     Dates: end: 20111117
  14. VALACYCLOVIR HYDROCHLORIDE [Concomitant]
     Route: 048
     Dates: start: 20111028
  15. ASPEGIC 1000 [Concomitant]
     Dosage: 250 MILLIGRAM
     Route: 041

REACTIONS (4)
  - HEMIPLEGIA [None]
  - CAROTID ARTERY THROMBOSIS [None]
  - ISCHAEMIC CEREBRAL INFARCTION [None]
  - LUNG DISORDER [None]
